FAERS Safety Report 5028781-7 (Version None)
Quarter: 2006Q2

REPORT INFORMATION
  Report Type: 
  Country: None (occurrence: None)
  Receive Date: 20060501
  Receipt Date: 20060331
  Transmission Date: 20061013
  Serious: No
  Sender: FDA-Public Use
  Company Number: 200613096US

PATIENT
  Age: 56 Year
  Sex: Female

DRUGS (5)
  1. KETEK [Suspect]
     Indication: BRONCHITIS
     Dosage: 800 MG PO
     Route: 048
     Dates: start: 20060310, end: 20060314
  2. FLUTICASONE PROPIONATE (FLONASE) [Concomitant]
  3. LIOTHYRONINE SODIUM (CYTOMEL) [Concomitant]
  4. ESTROGEN NOS [Concomitant]
  5. WELLBUTRIN [Concomitant]

REACTIONS (2)
  - HEPATIC ENZYME INCREASED [None]
  - NAUSEA [None]
